FAERS Safety Report 14169351 (Version 1)
Quarter: 2017Q4

REPORT INFORMATION
  Report Type: Spontaneous
  Country: US (occurrence: US)
  Receive Date: 20171107
  Receipt Date: 20171107
  Transmission Date: 20180321
  Serious: Yes (Other)
  Sender: FDA-Public Use
  Company Number: None

PATIENT
  Age: 46 Year
  Sex: Male
  Weight: 99 kg

DRUGS (3)
  1. ZANTAC [Concomitant]
     Active Substance: RANITIDINE HYDROCHLORIDE
  2. OXYCODONE HCL 10 MG [Suspect]
     Active Substance: OXYCODONE HYDROCHLORIDE
     Indication: SPINAL DISORDER
     Dosage: ?          QUANTITY:1 TABLET(S);?
     Route: 048
  3. VALIUM [Concomitant]
     Active Substance: DIAZEPAM

REACTIONS (10)
  - Nausea [None]
  - Pain [None]
  - Flushing [None]
  - Dizziness [None]
  - Abdominal pain upper [None]
  - Vision blurred [None]
  - Headache [None]
  - Hyperhidrosis [None]
  - Product substitution issue [None]
  - Heart rate increased [None]

NARRATIVE: CASE EVENT DATE: 20171027
